FAERS Safety Report 20406719 (Version 2)
Quarter: 2022Q1

REPORT INFORMATION
  Report Type: Report from Study
  Country: MX (occurrence: MX)
  Receive Date: 20220131
  Receipt Date: 20220209
  Transmission Date: 20220423
  Serious: Yes (Other)
  Sender: FDA-Public Use
  Company Number: MX-UCBSA-2022003805

PATIENT
  Sex: Male
  Weight: 34.2 kg

DRUGS (11)
  1. BRIVARACETAM [Suspect]
     Active Substance: BRIVARACETAM
     Indication: Epilepsy
     Dosage: 100 MILLIGRAM, 2X/DAY (BID)
     Dates: start: 2021
  2. BRIVARACETAM [Suspect]
     Active Substance: BRIVARACETAM
     Dosage: 1.5 TABLETS EVERY 12 HOURS
     Dates: start: 2021
  3. BRIVARACETAM [Suspect]
     Active Substance: BRIVARACETAM
     Dosage: 200 MILLIGRAM, 2X/DAY (BID)
     Dates: start: 2021
  4. CLONAZEPAM [Concomitant]
     Active Substance: CLONAZEPAM
     Indication: Epilepsy
  5. LAMOTRIGINE [Concomitant]
     Active Substance: LAMOTRIGINE
     Indication: Epilepsy
  6. INOVELON [Concomitant]
     Active Substance: RUFINAMIDE
     Indication: Epilepsy
  7. RISPERDAL [Concomitant]
     Active Substance: RISPERIDONE
     Indication: Epilepsy
  8. QUETIAPINE [Concomitant]
     Active Substance: QUETIAPINE
     Indication: Epilepsy
  9. VALPROIC ACID [Concomitant]
     Active Substance: VALPROIC ACID
  10. CISAPRIDE [Concomitant]
     Active Substance: CISAPRIDE
     Indication: Dyspepsia
  11. CANNABIS SATIVA SUBSP. INDICA TOP [Concomitant]
     Active Substance: CANNABIS SATIVA SUBSP. INDICA TOP
     Indication: Epilepsy

REACTIONS (3)
  - Seizure [Not Recovered/Not Resolved]
  - Off label use [Unknown]
  - Overdose [Unknown]

NARRATIVE: CASE EVENT DATE: 20210101
